FAERS Safety Report 14773264 (Version 1)
Quarter: 2018Q2

REPORT INFORMATION
  Report Type: Spontaneous
  Country: US (occurrence: US)
  Receive Date: 20180411
  Receipt Date: 20180411
  Transmission Date: 20180711
  Serious: Yes (Life-Threatening)
  Sender: FDA-Public Use
  Company Number: None

PATIENT
  Age: 80 Year
  Sex: Male
  Weight: 149.4 kg

DRUGS (4)
  1. IBUPROFEN. [Suspect]
     Active Substance: IBUPROFEN
     Indication: GASTROINTESTINAL HAEMORRHAGE
     Dates: end: 20150409
  2. NAPROXEN. [Suspect]
     Active Substance: NAPROXEN
     Indication: GASTROINTESTINAL HAEMORRHAGE
     Dates: end: 20150409
  3. NAPROXEN. [Suspect]
     Active Substance: NAPROXEN
     Indication: DUODENAL ULCER
     Dates: end: 20150409
  4. IBUPROFEN. [Suspect]
     Active Substance: IBUPROFEN
     Indication: DUODENAL ULCER
     Dates: end: 20150409

REACTIONS (2)
  - Gastric haemorrhage [None]
  - Overdose [None]

NARRATIVE: CASE EVENT DATE: 20150409
